FAERS Safety Report 19949965 (Version 1)
Quarter: 2021Q4

REPORT INFORMATION
  Report Type: Spontaneous
  Country: US (occurrence: US)
  Receive Date: 20211013
  Receipt Date: 20211013
  Transmission Date: 20220303
  Serious: Yes (Other)
  Sender: FDA-Public Use
  Company Number: None

PATIENT
  Age: 28 Year
  Sex: Female
  Weight: 76.5 kg

DRUGS (3)
  1. QVAR REDIHALER [Suspect]
     Active Substance: BECLOMETHASONE DIPROPIONATE
     Indication: Asthma
     Dosage: ?          QUANTITY:120 INHALATION(S);
     Route: 055
     Dates: start: 20210912, end: 20211006
  2. MONTELUKAST [Concomitant]
     Active Substance: MONTELUKAST SODIUM
  3. FLUTICASONE [Concomitant]
     Active Substance: FLUTICASONE

REACTIONS (7)
  - Drug delivery system malfunction [None]
  - Incorrect dose administered [None]
  - Chest pain [None]
  - Dizziness [None]
  - Fatigue [None]
  - Aphasia [None]
  - Chest discomfort [None]

NARRATIVE: CASE EVENT DATE: 20211010
